FAERS Safety Report 8018982-8 (Version None)
Quarter: 2012Q1

REPORT INFORMATION
  Report Type: 
  Country: None (occurrence: None)
  Receive Date: 20120103
  Receipt Date: 20111227
  Transmission Date: 20120608
  Serious: Yes (Death)
  Sender: FDA-Public Use
  Company Number: US-BAYER-2011-030711

PATIENT
  Age: 35 Year
  Sex: Female
  Weight: 75.737 kg

DRUGS (18)
  1. NAPROXEN [Concomitant]
     Dosage: 500 MG, PRN
  2. METRONIDAZOLE [Concomitant]
     Route: 067
  3. CELEXA [Concomitant]
     Dosage: UNK
     Dates: start: 20090915
  4. AUGMENTIN '125' [Concomitant]
     Dosage: 875 MG/ 125 MG
     Route: 048
     Dates: start: 20091001
  5. YAZ [Suspect]
     Indication: ORAL CONTRACEPTION
     Dosage: UNK
     Dates: start: 20090301, end: 20091101
  6. VITAMIN B12 NOS W/VITAMIN B6 [Concomitant]
     Indication: SUPPLEMENTATION THERAPY
  7. LORTAB [Concomitant]
     Indication: MUSCLE RUPTURE
     Dosage: 5 MG /500 MG, 1 TAB EVERY 6 HOURS AS NEEDED
     Route: 048
     Dates: start: 20090901
  8. IBUPROFEN [Concomitant]
  9. LUNESTA [Concomitant]
     Dosage: 2 MG, QD
  10. METFORMIN HCL [Concomitant]
     Dosage: 2 DF, QD
  11. FERROUS SULFATE TAB [Concomitant]
  12. VITAMINS NOS [Concomitant]
  13. VITAMIN D [Concomitant]
     Dosage: UNK
     Dates: start: 20090915
  14. YAZ [Suspect]
     Indication: DYSMENORRHOEA
     Dosage: UNK
     Dates: start: 20071101, end: 20081101
  15. YAZ [Suspect]
     Indication: MENSTRUATION IRREGULAR
  16. SKELAXIN [Concomitant]
     Dosage: 2 DF, QID
  17. EXTINA [Concomitant]
  18. CITALOPRAM [Concomitant]
     Dosage: 20 MG, QD
     Route: 048

REACTIONS (4)
  - MYOCARDIAL INFARCTION [None]
  - BLOOD POTASSIUM INCREASED [None]
  - DEPRESSION [None]
  - WEIGHT INCREASED [None]
